FAERS Safety Report 9012077 (Version 1)
Quarter: 2012Q4

REPORT INFORMATION
  Report Type: Spontaneous
  Country: DK (occurrence: None)
  Receive Date: 20121228
  Receipt Date: 20121228
  Transmission Date: 20130627
  Serious: Yes (Other)
  Sender: FDA-Public Use
  Company Number: 2012MA014264

PATIENT
  Age: 69 Year
  Sex: Female

DRUGS (2)
  1. NAPROXEN DELAYED-RELEASE TABLETS, 500 MG (PUREPAC) (NAPROXEN) [Suspect]
     Route: 048
     Dates: start: 20121206, end: 20121206
  2. LATANOPROST [Concomitant]

REACTIONS (1)
  - Anaphylactoid shock [None]
